FAERS Safety Report 11748918 (Version 3)
Quarter: 2016Q1

REPORT INFORMATION
  Report Type: Report from Study
  Country: CA (occurrence: CA)
  Receive Date: 20151118
  Receipt Date: 20160113
  Transmission Date: 20160525
  Serious: Yes (Other)
  Sender: FDA-Public Use
  Company Number: CA-ROCHE-1407332

PATIENT
  Age: 57 Year
  Sex: Female
  Weight: 73 kg

DRUGS (9)
  1. RITUXAN [Suspect]
     Active Substance: RITUXIMAB
     Dosage: 400MG/HR WITH 100ML REMAINING
     Route: 042
     Dates: start: 20150119
  2. ORENCIA [Concomitant]
     Active Substance: ABATACEPT
  3. RITUXAN [Suspect]
     Active Substance: RITUXIMAB
     Dosage: HALF OF THE DOSE PER HOUR
     Route: 042
     Dates: start: 20140605
  4. DIPHENHYDRAMINE HCL [Concomitant]
     Active Substance: DIPHENHYDRAMINE HYDROCHLORIDE
     Indication: PREMEDICATION
     Route: 048
     Dates: start: 20140522
  5. SULFASALAZINE. [Concomitant]
     Active Substance: SULFASALAZINE
  6. RITUXAN [Suspect]
     Active Substance: RITUXIMAB
     Indication: RHEUMATOID ARTHRITIS
     Dosage: LAST DOSE: 22/MAY/2014 ?TBD
     Route: 042
     Dates: start: 20140522, end: 20151116
  7. ACETAMINOPHEN. [Concomitant]
     Active Substance: ACETAMINOPHEN
     Indication: PREMEDICATION
     Route: 048
     Dates: start: 20140522
  8. METHYLPREDNISOLONE. [Concomitant]
     Active Substance: METHYLPREDNISOLONE
     Indication: PREMEDICATION
     Route: 042
     Dates: start: 20140522
  9. METHOTREXATE [Concomitant]
     Active Substance: METHOTREXATE

REACTIONS (8)
  - Herpes zoster [Recovered/Resolved]
  - Dyspnoea [Recovered/Resolved]
  - Infusion related reaction [Unknown]
  - Localised infection [Not Recovered/Not Resolved]
  - Infusion related reaction [Recovering/Resolving]
  - Infection [Not Recovered/Not Resolved]
  - Supraventricular tachycardia [Unknown]
  - Heart rate irregular [Unknown]

NARRATIVE: CASE EVENT DATE: 20140522
